FAERS Safety Report 9377739 (Version 2)
Quarter: 2013Q3

REPORT INFORMATION
  Report Type: Spontaneous
  Country: US (occurrence: US)
  Receive Date: 20130701
  Receipt Date: 20130723
  Transmission Date: 20140515
  Serious: Yes (Other)
  Sender: FDA-Public Use
  Company Number: US-PFIZER INC-2013190875

PATIENT
  Age: 62 Year
  Sex: Female
  Weight: 89.8 kg

DRUGS (2)
  1. PREMARIN [Suspect]
     Indication: HORMONE REPLACEMENT THERAPY
     Dosage: 0.5 G, 3X/WEEK
     Route: 067
  2. PREMARIN [Suspect]
     Indication: ATROPHY
     Dosage: 1 G, DAILY

REACTIONS (3)
  - Bladder cancer [Unknown]
  - Mental disorder [Unknown]
  - Bladder neoplasm [Unknown]
